FAERS Safety Report 9815940 (Version 1)
Quarter: 2014Q1

REPORT INFORMATION
  Report Type: Spontaneous
  Country: US (occurrence: US)
  Receive Date: 20140114
  Receipt Date: 20140114
  Transmission Date: 20141002
  Serious: No
  Sender: FDA-Public Use
  Company Number: US-BAYER-2014-006000

PATIENT
  Age: 51 Year
  Sex: Female
  Weight: 81.63 kg

DRUGS (3)
  1. MIDOL EXTENDED RELIEF CAPLET [Suspect]
     Indication: DYSMENORRHOEA
     Dosage: 1 DF, PRN
     Route: 048
  2. MIDOL MENSTRUAL COMPLETE FORMULA [Suspect]
     Dosage: 1 DF, PRN
     Route: 048
  3. ALEVE LIQUID GELS [Suspect]
     Dosage: 1 DF, PRN
     Route: 048

REACTIONS (1)
  - Drug ineffective [None]
